FAERS Safety Report 6198125-6 (Version None)
Quarter: 2009Q2

REPORT INFORMATION
  Report Type: 
  Country: None (occurrence: None)
  Receive Date: 20090521
  Receipt Date: 20090306
  Transmission Date: 20091009
  Serious: Yes (Other)
  Sender: FDA-Public Use
  Company Number: GB-PFIZER INC-2009180789

PATIENT

DRUGS (2)
  1. CHAMPIX [Suspect]
     Dosage: UNK
  2. SALBUTAMOL [Concomitant]
     Dosage: UNK
     Route: 055

REACTIONS (2)
  - CHRONIC OBSTRUCTIVE PULMONARY DISEASE [None]
  - MOUTH ULCERATION [None]
